FAERS Safety Report 4341363-5 (Version None)
Quarter: 2004Q2

REPORT INFORMATION
  Report Type: 
  Country: None (occurrence: None)
  Receive Date: 20040412
  Receipt Date: 20040204
  Transmission Date: 20050107
  Serious: Yes (Hospitalization)
  Sender: FDA-Public Use
  Company Number: 2004007662

PATIENT
  Sex: Male

DRUGS (1)
  1. GEODON [Suspect]
     Indication: ILL-DEFINED DISORDER
     Dosage: 20 MG, INTRAMUSCULAR
     Route: 030

REACTIONS (2)
  - BLOOD PRESSURE DECREASED [None]
  - HEART RATE INCREASED [None]
